FAERS Safety Report 21017682 (Version 2)
Quarter: 2022Q3

REPORT INFORMATION
  Report Type: Report from Study
  Country: US (occurrence: None)
  Receive Date: 20220628
  Receipt Date: 20220818
  Transmission Date: 20221027
  Serious: Yes (Other)
  Sender: FDA-Public Use
  Company Number: US-Merck Healthcare KGaA-9331773

PATIENT
  Sex: Male

DRUGS (1)
  1. REBIF [Suspect]
     Active Substance: INTERFERON BETA-1A
     Indication: Multiple sclerosis
     Route: 058
     Dates: start: 20191202

REACTIONS (5)
  - Haematochezia [Unknown]
  - Erectile dysfunction [Unknown]
  - Blood testosterone increased [Unknown]
  - Urinary incontinence [Unknown]
  - Enuresis [Unknown]
